FAERS Safety Report 4880719-9 (Version None)
Quarter: 2006Q1

REPORT INFORMATION
  Report Type: 
  Country: None (occurrence: None)
  Receive Date: 20060113
  Receipt Date: 20051005
  Transmission Date: 20060701
  Serious: Yes (Death, Hospitalization)
  Sender: FDA-Public Use
  Company Number: US-MERCK-0510USA03933

PATIENT
  Age: 71 Year
  Sex: Male
  Weight: 80 kg

DRUGS (6)
  1. VIOXX [Suspect]
     Indication: ARTHRITIS
     Route: 048
     Dates: start: 20011015, end: 20040331
  2. VIOXX [Suspect]
     Indication: ROTATOR CUFF SYNDROME
     Route: 048
     Dates: start: 20011015, end: 20040331
  3. THEOCHRON [Concomitant]
     Route: 065
  4. ALBUTEROL [Concomitant]
     Route: 065
  5. ATROVENT [Concomitant]
     Route: 065
  6. COMBIVENT [Concomitant]
     Route: 055

REACTIONS (23)
  - ABDOMINAL HERNIA [None]
  - ACUTE MYOCARDIAL INFARCTION [None]
  - ARTERIAL OCCLUSIVE DISEASE [None]
  - ATRIAL FIBRILLATION [None]
  - BRONCHITIS CHRONIC [None]
  - CARDIAC PSEUDOANEURYSM [None]
  - CAROTID ARTERY DISEASE [None]
  - CATARACT [None]
  - DIABETES MELLITUS [None]
  - DYSURIA [None]
  - EPISTAXIS [None]
  - HAEMOPTYSIS [None]
  - HYPONATRAEMIA [None]
  - ILEUS [None]
  - LEUKOCYTOSIS [None]
  - LOBAR PNEUMONIA [None]
  - NORMOCHROMIC NORMOCYTIC ANAEMIA [None]
  - PERIPHERAL VASCULAR DISORDER [None]
  - PNEUMONIA [None]
  - POSTOPERATIVE THORACIC PROCEDURE COMPLICATION [None]
  - RENAL FAILURE [None]
  - RESPIRATORY FAILURE [None]
  - WOUND DEHISCENCE [None]
